FAERS Safety Report 7969263-X (Version None)
Quarter: 2011Q4

REPORT INFORMATION
  Report Type: 
  Country: None (occurrence: None)
  Receive Date: 20111209
  Receipt Date: 20111130
  Transmission Date: 20120403
  Serious: Yes (Hospitalization, Other)
  Sender: FDA-Public Use
  Company Number: BR-ASTRAZENECA-2011SE73265

PATIENT
  Age: 74 Year
  Sex: Male

DRUGS (3)
  1. ATACAND HCT [Suspect]
     Dosage: 16/2.5 MG
     Route: 048
     Dates: end: 20111101
  2. CRESTOR [Suspect]
     Route: 048
  3. NEXIUM [Suspect]
     Route: 048

REACTIONS (5)
  - DIZZINESS [None]
  - WEIGHT DECREASED [None]
  - BLADDER CANCER [None]
  - HYPOTENSION [None]
  - BLOOD URINE PRESENT [None]
